FAERS Safety Report 12573428 (Version 1)
Quarter: 2016Q3

REPORT INFORMATION
  Report Type: Spontaneous
  Country: US (occurrence: None)
  Receive Date: 20160719
  Receipt Date: 20160719
  Transmission Date: 20161109
  Serious: No
  Sender: FDA-Public Use
  Company Number: None

PATIENT
  Age: 65 Year
  Sex: Male
  Weight: 76.2 kg

DRUGS (10)
  1. ELAVIL [Concomitant]
     Active Substance: AMITRIPTYLINE HYDROCHLORIDE
  2. LOVASTATIN. [Concomitant]
     Active Substance: LOVASTATIN
  3. NEXIUM [Concomitant]
     Active Substance: ESOMEPRAZOLE MAGNESIUM
  4. LACTULOSE 10GM/15ML SOLUTION MFG PHARM ASSOC. [Suspect]
     Active Substance: LACTULOSE
     Indication: CONSTIPATION
     Dosage: 10 GM/15ML DRINK 30 MLS (1 OUNCE) QDAY ONCE DAILY BY MOUTH
     Route: 048
     Dates: start: 20160613, end: 20160613
  5. GABAPENTIN. [Concomitant]
     Active Substance: GABAPENTIN
  6. DILANTIN [Concomitant]
     Active Substance: PHENYTOIN
  7. LABETOLOL [Concomitant]
     Active Substance: LABETALOL HYDROCHLORIDE
  8. EC-ASA [Concomitant]
  9. BACLOFEN. [Concomitant]
     Active Substance: BACLOFEN
  10. STOOL SOFTENER [Concomitant]
     Active Substance: DOCUSATE CALCIUM

REACTIONS (1)
  - Confusional state [None]

NARRATIVE: CASE EVENT DATE: 20160614
